FAERS Safety Report 10625153 (Version 1)
Quarter: 2014Q4

REPORT INFORMATION
  Report Type: Spontaneous
  Country: US (occurrence: None)
  Receive Date: 20141121
  Receipt Date: 20141121
  Transmission Date: 20150529
  Serious: Yes (Other)
  Sender: FDA-Public Use
  Company Number: 2014-21256

PATIENT
  Age: 60 Year
  Sex: Female

DRUGS (4)
  1. ALLOPURINOL. [Suspect]
     Active Substance: ALLOPURINOL
     Indication: GOUT
     Route: 048
     Dates: start: 201404
  2. METOPROLOL [Concomitant]
     Active Substance: METOPROLOL
  3. ALBUTEROL /00139501/ (SALBUTAMOL) [Concomitant]
     Active Substance: ALBUTEROL
  4. THEOPHYLLIN (THEOPHYLLINE) [Concomitant]

REACTIONS (5)
  - Hypersensitivity [None]
  - Erythema [None]
  - Rash [None]
  - Pruritus [None]
  - Swelling [None]

NARRATIVE: CASE EVENT DATE: 201404
